FAERS Safety Report 18582769 (Version 7)
Quarter: 2021Q3

REPORT INFORMATION
  Report Type: Spontaneous
  Country: AT (occurrence: AT)
  Receive Date: 20201205
  Receipt Date: 20210731
  Transmission Date: 20211014
  Serious: No
  Sender: FDA-Public Use
  Company Number: NVSC2020AT317521

PATIENT
  Sex: Female
  Weight: 89 kg

DRUGS (39)
  1. DOCETAXEL. [Suspect]
     Active Substance: DOCETAXEL
     Indication: BREAST CANCER METASTATIC
     Dosage: 137 MG, TIW
     Route: 042
     Dates: start: 20180608, end: 20180608
  2. DOCETAXEL. [Suspect]
     Active Substance: DOCETAXEL
     Dosage: 106.22 MG, TIW
     Route: 042
     Dates: start: 20181017, end: 20181017
  3. TRASTUZUMAB. [Suspect]
     Active Substance: TRASTUZUMAB
     Dosage: 534 MG, TIW
     Route: 042
     Dates: start: 20170714, end: 20170804
  4. TRASTUZUMAB. [Suspect]
     Active Substance: TRASTUZUMAB
     Dosage: 480 MG, TIW
     Route: 042
     Dates: start: 20170828, end: 20171030
  5. TRASTUZUMAB. [Suspect]
     Active Substance: TRASTUZUMAB
     Dosage: 408 MG, TIW (ON 24/APR/2020, MOST RECENT DOSE)
     Route: 041
     Dates: start: 20181219, end: 20200424
  6. FORTECORTIN [Concomitant]
     Active Substance: DEXAMETHASONE
     Indication: PRODUCT USED FOR UNKNOWN INDICATION
     Dosage: UNK
     Route: 065
     Dates: start: 20180723, end: 20181017
  7. KYTRIL [Concomitant]
     Active Substance: GRANISETRON HYDROCHLORIDE
     Indication: PRODUCT USED FOR UNKNOWN INDICATION
     Dosage: ONGOING = CHECKED
     Route: 065
     Dates: start: 20180608
  8. TRASTUZUMAB. [Suspect]
     Active Substance: TRASTUZUMAB
     Indication: BREAST CANCER METASTATIC
     Dosage: 712 MG, TIW
     Route: 042
     Dates: start: 20170324, end: 20170324
  9. TRASTUZUMAB. [Suspect]
     Active Substance: TRASTUZUMAB
     Dosage: 438 MG, TIW
     Route: 042
     Dates: start: 20180926, end: 20180926
  10. PERTUZUMAB. [Suspect]
     Active Substance: PERTUZUMAB
     Indication: BREAST CANCER METASTATIC
     Dosage: 840 MG, TIW (840 MG, EVERY 3 WEEKS, MOST RECENT DOSE PRIOR TO THE EVENT: 14/JUL/2017, 13/DEC/2017, 2
     Route: 042
     Dates: start: 20170324, end: 20170324
  11. PERTUZUMAB. [Suspect]
     Active Substance: PERTUZUMAB
     Dosage: 420 MG, WEEKLY
     Route: 042
     Dates: start: 20180723
  12. TRASTUZUMAB. [Suspect]
     Active Substance: TRASTUZUMAB
     Dosage: 450 MG, TIW (ONGOING)
     Route: 042
     Dates: start: 20200515
  13. PERTUZUMAB. [Suspect]
     Active Substance: PERTUZUMAB
     Dosage: 420 MG, WEEKLY
     Route: 042
     Dates: start: 20170414, end: 20170619
  14. DEXABENE [Concomitant]
     Indication: PRODUCT USED FOR UNKNOWN INDICATION
     Dosage: UNK
     Route: 065
     Dates: start: 20181107
  15. TRITAZIDE [Concomitant]
     Active Substance: HYDROCHLOROTHIAZIDE\RAMIPRIL
     Indication: PRODUCT USED FOR UNKNOWN INDICATION
     Dosage: UNK
     Route: 065
  16. ACETYLSALICYLIC ACID [Concomitant]
     Active Substance: ASPIRIN
     Indication: HYPERTENSION
     Dosage: UNK
     Route: 065
     Dates: start: 20171120, end: 20190615
  17. FULVESTRANT. [Suspect]
     Active Substance: FULVESTRANT
     Indication: BREAST CANCER METASTATIC
     Dosage: 500 MG, BIW
     Route: 030
     Dates: start: 20181128
  18. DOCETAXEL. [Suspect]
     Active Substance: DOCETAXEL
     Dosage: 134.32 MG, TIW
     Route: 042
     Dates: start: 20180723, end: 20180904
  19. TRASTUZUMAB. [Suspect]
     Active Substance: TRASTUZUMAB
     Dosage: 474 MG, TIW
     Route: 042
     Dates: start: 20171213, end: 20180514
  20. TRASTUZUMAB. [Suspect]
     Active Substance: TRASTUZUMAB
     Dosage: 462 MG, TIW
     Route: 042
     Dates: start: 20180608, end: 20180608
  21. TRASTUZUMAB. [Suspect]
     Active Substance: TRASTUZUMAB
     Dosage: 450 MG, TIW
     Route: 042
     Dates: start: 20180723, end: 20180904
  22. PANTOPRAZOLE [Concomitant]
     Active Substance: PANTOPRAZOLE
     Indication: PRODUCT USED FOR UNKNOWN INDICATION
     Dosage: UNK
     Route: 065
  23. FENISTIL [Concomitant]
     Active Substance: DIMETHINDENE
     Indication: PRODUCT USED FOR UNKNOWN INDICATION
     Dosage: UNK
     Route: 065
     Dates: start: 20170414
  24. CAL D VITA [Concomitant]
     Indication: PRODUCT USED FOR UNKNOWN INDICATION
     Dosage: UNK
     Route: 065
     Dates: start: 20170505, end: 20190615
  25. XGEVA [Concomitant]
     Active Substance: DENOSUMAB
     Dosage: UNK
     Route: 065
     Dates: start: 20181017
  26. ANASTROZOLE. [Suspect]
     Active Substance: ANASTROZOLE
     Indication: BREAST CANCER METASTATIC
     Dosage: 1 MG, QD (MOST RECENT DOSE PRIOR TO AE 14/MAY/2018)
     Route: 048
     Dates: start: 20170324
  27. DOCETAXEL. [Suspect]
     Active Substance: DOCETAXEL
     Dosage: 132.78 MG, TIW
     Route: 042
     Dates: start: 20180926, end: 20180926
  28. DOCETAXEL. [Suspect]
     Active Substance: DOCETAXEL
     Dosage: 132.78MG
     Route: 042
     Dates: start: 20180926, end: 20180926
  29. URBASON [Concomitant]
     Active Substance: METHYLPREDNISOLONE
     Indication: PRODUCT USED FOR UNKNOWN INDICATION
     Dosage: UNK
     Route: 065
     Dates: start: 20191210
  30. TRASTUZUMAB. [Suspect]
     Active Substance: TRASTUZUMAB
     Dosage: 438 MG, TIW
     Route: 041
     Dates: start: 20181017, end: 20181017
  31. PERTUZUMAB. [Suspect]
     Active Substance: PERTUZUMAB
     Dosage: 840 MG, TIW (MOST RECENT DOSE PRIOR TO THE EVENT: 14/JUL/2017, 13/DEC/2017, 23/JUL/2018)
     Route: 042
     Dates: start: 20170714, end: 20171030
  32. XGEVA [Concomitant]
     Active Substance: DENOSUMAB
     Indication: PRODUCT USED FOR UNKNOWN INDICATION
     Dosage: UNK
     Route: 065
     Dates: start: 20170505, end: 20180329
  33. PERTUZUMAB. [Suspect]
     Active Substance: PERTUZUMAB
     Dosage: 420 MG, WEEKLY
     Route: 042
     Dates: start: 20171213, end: 20180608
  34. CORTISON [Concomitant]
     Active Substance: CORTISONE ACETATE
     Indication: PRODUCT USED FOR UNKNOWN INDICATION
     Dosage: ONGOING = NOT CHECKED
     Route: 065
     Dates: start: 20180608, end: 20180608
  35. FORTECORTIN [Concomitant]
     Active Substance: DEXAMETHASONE
     Dosage: UNK
     Route: 065
     Dates: start: 20181017
  36. FULVESTRANT. [Suspect]
     Active Substance: FULVESTRANT
     Dosage: 500 MG, BIW
     Route: 030
     Dates: start: 20181226
  37. TRASTUZUMAB. [Suspect]
     Active Substance: TRASTUZUMAB
     Dosage: 534 MG, TIW
     Route: 042
     Dates: start: 20170414, end: 20170619
  38. PERTUZUMAB. [Suspect]
     Active Substance: PERTUZUMAB
     Dosage: 420 MG, WEEKLY
     Route: 042
     Dates: start: 20170714, end: 20171030
  39. ULSAL [Concomitant]
     Active Substance: RANITIDINE HYDROCHLORIDE
     Indication: PRODUCT USED FOR UNKNOWN INDICATION
     Dosage: UNK
     Route: 065
     Dates: start: 20170414, end: 20191119

REACTIONS (2)
  - Ejection fraction decreased [Not Recovered/Not Resolved]
  - Dyspnoea [Recovered/Resolved]

NARRATIVE: CASE EVENT DATE: 20200128
